FAERS Safety Report 23642374 (Version 2)
Quarter: 2024Q2

REPORT INFORMATION
  Report Type: Spontaneous
  Country: JP (occurrence: JP)
  Receive Date: 20240318
  Receipt Date: 20240425
  Transmission Date: 20240715
  Serious: No
  Sender: FDA-Public Use
  Company Number: JP-PFIZER INC-PV202400024936

PATIENT
  Age: 5 Year
  Sex: Female

DRUGS (1)
  1. NGENLA [Suspect]
     Active Substance: SOMATROGON-GHLA
     Dosage: UNK
     Route: 058

REACTIONS (2)
  - Injection site pain [Recovered/Resolved]
  - Fear of injection [Unknown]

NARRATIVE: CASE EVENT DATE: 20240101
